FAERS Safety Report 12501288 (Version 1)
Quarter: 2016Q2

REPORT INFORMATION
  Report Type: Spontaneous
  Country: US (occurrence: US)
  Receive Date: 20160627
  Receipt Date: 20160627
  Transmission Date: 20160815
  Serious: Yes (Other)
  Sender: FDA-Public Use
  Company Number: US-PURDUE PHARMA-USA-2016-0131754

PATIENT
  Age: 38 Year
  Sex: Female

DRUGS (5)
  1. OXYCODONE HCL LIQUID [Concomitant]
     Active Substance: OXYCODONE HYDROCHLORIDE
     Dosage: 1 MG/ML, UNK
     Route: 065
  2. BUTRANS [Suspect]
     Active Substance: BUPRENORPHINE
     Indication: INTERVERTEBRAL DISC DEGENERATION
     Dosage: 10 MCG/HR, WEEKLY
     Route: 062
     Dates: start: 20160601
  3. BUTRANS [Suspect]
     Active Substance: BUPRENORPHINE
     Indication: IMPAIRED GASTRIC EMPTYING
  4. OXYCODONE HCL LIQUID [Concomitant]
     Active Substance: OXYCODONE HYDROCHLORIDE
     Indication: PRODUCT USED FOR UNKNOWN INDICATION
     Dosage: UNK
     Route: 065
  5. BUTRANS [Suspect]
     Active Substance: BUPRENORPHINE
     Indication: VAGUS NERVE DISORDER

REACTIONS (5)
  - Hypoaesthesia [Unknown]
  - Drug effect incomplete [Unknown]
  - Drug effect decreased [Unknown]
  - Movement disorder [Unknown]
  - Feeling abnormal [Unknown]

NARRATIVE: CASE EVENT DATE: 20160603
